FAERS Safety Report 19498065 (Version 1)
Quarter: 2021Q3

REPORT INFORMATION
  Report Type: Spontaneous
  Country: US (occurrence: US)
  Receive Date: 20210706
  Receipt Date: 20210706
  Transmission Date: 20211014
  Serious: Yes (Hospitalization)
  Sender: FDA-Public Use
  Company Number: US-MEITHEAL-2021MPLIT00009

PATIENT
  Age: 56 Year
  Sex: Male

DRUGS (5)
  1. CISPLATIN. [Suspect]
     Active Substance: CISPLATIN
     Indication: TESTIS CANCER
  2. ETOPOSIDE. [Suspect]
     Active Substance: ETOPOSIDE
     Indication: TESTIS CANCER
  3. CISPLATIN. [Suspect]
     Active Substance: CISPLATIN
  4. CISPLATIN. [Suspect]
     Active Substance: CISPLATIN
  5. BLEOMYCIN [Suspect]
     Active Substance: BLEOMYCIN SULFATE
     Indication: TESTIS CANCER

REACTIONS (1)
  - Testicular malignant teratoma [Unknown]
